FAERS Safety Report 4280854-2 (Version None)
Quarter: 2004Q1

REPORT INFORMATION
  Report Type: 
  Country: None (occurrence: None)
  Receive Date: 20040127
  Receipt Date: 20040112
  Transmission Date: 20041129
  Serious: Yes (Hospitalization)
  Sender: FDA-Public Use
  Company Number: 182908

PATIENT
  Age: 33 Year
  Sex: Female
  Weight: 90.7194 kg

DRUGS (8)
  1. AVONEX [Suspect]
     Indication: MULTIPLE SCLEROSIS
     Dosage: 30 MG QW IM
     Route: 030
     Dates: start: 20030901, end: 20031010
  2. NEURONTIN [Concomitant]
  3. AMITRIPTYLINE HCL [Concomitant]
  4. CELEBREX [Concomitant]
  5. TOPAMAX [Concomitant]
  6. TRICOR [Concomitant]
  7. PRAVACHOL [Concomitant]
  8. PREMARIN [Concomitant]

REACTIONS (15)
  - AUTOIMMUNE THROMBOCYTOPENIA [None]
  - CEREBROVASCULAR ACCIDENT [None]
  - CONTUSION [None]
  - COUGH [None]
  - DRUG INEFFECTIVE [None]
  - ECCHYMOSIS [None]
  - EPISTAXIS [None]
  - HEADACHE [None]
  - MYALGIA [None]
  - NEUTROPHIL PERCENTAGE INCREASED [None]
  - PETECHIAE [None]
  - POST PROCEDURAL COMPLICATION [None]
  - PYREXIA [None]
  - RED BLOOD CELL ABNORMALITY [None]
  - SMEAR SITE UNSPECIFIED ABNORMAL [None]
